FAERS Safety Report 15582166 (Version 1)
Quarter: 2018Q4

REPORT INFORMATION
  Report Type: Spontaneous
  Country: US (occurrence: US)
  Receive Date: 20181102
  Receipt Date: 20181102
  Transmission Date: 20190205
  Serious: No
  Sender: FDA-Public Use
  Company Number: US-RADIUS HEALTH INC.-2018US002032

PATIENT

DRUGS (1)
  1. TYMLOS [Suspect]
     Active Substance: ABALOPARATIDE
     Indication: OSTEOPOROSIS POSTMENOPAUSAL
     Dosage: 80 MCG, QD
     Route: 058
     Dates: start: 201808

REACTIONS (10)
  - Confusional state [Unknown]
  - Needle issue [Unknown]
  - Tinnitus [Unknown]
  - Heart rate increased [Unknown]
  - Palpitations [Not Recovered/Not Resolved]
  - Pain [Recovering/Resolving]
  - Heart rate decreased [Unknown]
  - Nausea [Unknown]
  - Product quality issue [Unknown]
  - Dizziness [Unknown]

NARRATIVE: CASE EVENT DATE: 20180829
